FAERS Safety Report 23234420 (Version 1)
Quarter: 2023Q4

REPORT INFORMATION
  Report Type: Spontaneous
  Country: SE (occurrence: SE)
  Receive Date: 20231128
  Receipt Date: 20231128
  Transmission Date: 20240110
  Serious: Yes (Disabling)
  Sender: FDA-Public Use
  Company Number: None

PATIENT
  Age: 58 Year
  Sex: Male

DRUGS (18)
  1. SKYRIZI [Suspect]
     Active Substance: RISANKIZUMAB-RZAA
     Indication: Pityriasis rubra pilaris
     Dosage: 150 MG AS INITIAL DOSE, THEN 150 MG AFTER 4 WEEKS, THEN 150 MG EVERY 12 WEEKS
     Route: 058
  2. FOLVIDON [Concomitant]
     Indication: Product used for unknown indication
     Dosage: 1 PER DAY UNTIL FURTHER NOTICE, STRENGTH: 1 MG
     Route: 048
  3. Omezyl [Concomitant]
     Indication: Product used for unknown indication
     Dosage: 1 DAY, 20 MG
     Route: 048
  4. PARACETAMOL ALTERNOVA [Concomitant]
     Indication: Product used for unknown indication
     Dosage: 1 TABLET IF NEEDED IN ADDITION TO APODOSIS. 1 G
     Route: 048
  5. CLOPIDOGREL [Concomitant]
     Active Substance: CLOPIDOGREL BISULFATE
     Indication: Product used for unknown indication
     Dosage: 1 DAY,75 MG
     Route: 048
  6. KALIUMKLORID ORIFARM [Concomitant]
     Indication: Product used for unknown indication
     Dosage: TIME INTERVAL: 0.33333333 DAYS: 3 TABLETS THREE TIMES A DAY,750 MG
     Route: 048
  7. ROSUVASTATIN [Concomitant]
     Active Substance: ROSUVASTATIN
     Indication: Product used for unknown indication
     Dosage: 1 DAY, 20 MG
     Route: 048
  8. XARELTO [Concomitant]
     Active Substance: RIVAROXABAN
     Indication: Product used for unknown indication
     Dosage: 1 DAY, 	?15 MG
     Route: 048
  9. ZOPICLONE [Concomitant]
     Active Substance: ZOPICLONE
     Indication: Product used for unknown indication
     Dosage: 1 TABLET AT NIGHT IF NEEDED, 5 MG
     Route: 048
  10. OXIS [Concomitant]
     Active Substance: FORMOTEROL FUMARATE
     Indication: Product used for unknown indication
     Dosage: 1-2 INHALATIONS/DAY MAX 12/DAY,  TURBUHALER, 4,5 MIKROGRAM/DOS
  11. EZETIMIB MEDICAL VALLEY [Concomitant]
     Indication: Product used for unknown indication
     Dosage: 1 DAY, 10 MG
     Route: 048
  12. ENALAPRIL [Concomitant]
     Active Substance: ENALAPRIL
     Indication: Product used for unknown indication
     Dosage: 2/DAY MORNING EVENING,	2,5 MG
     Route: 048
  13. DAPAGLIFLOZIN [Concomitant]
     Active Substance: DAPAGLIFLOZIN
     Indication: Product used for unknown indication
     Dosage: 1 DAY,10 MG
     Route: 048
  14. BISOPROLOL [Concomitant]
     Active Substance: BISOPROLOL\BISOPROLOL FUMARATE
     Indication: Product used for unknown indication
     Dosage: 2/DAY MORNING EVENING, 2.5 MG
  15. FUROSEMIDE [Concomitant]
     Active Substance: FUROSEMIDE
     Indication: Product used for unknown indication
     Dosage: 1 DAY, 40 MG
     Route: 048
  16. ACETAMINOPHEN [Concomitant]
     Active Substance: ACETAMINOPHEN
     Indication: Product used for unknown indication
     Dosage: 2/DAY, 500 MG
     Route: 048
  17. OZEMPIC [Concomitant]
     Active Substance: SEMAGLUTIDE
     Indication: Product used for unknown indication
     Dosage: 1 DOSE PER WEEK,1 MG
     Route: 058
  18. HYDROKORTISON ORION [Concomitant]
     Indication: Product used for unknown indication
     Dosage: 2X AT 8 A.M. 1X AT 2 P.M. UNTIL FURTHER NOTICE, 	?10 MG
     Route: 048

REACTIONS (1)
  - Tinnitus [Not Recovered/Not Resolved]

NARRATIVE: CASE EVENT DATE: 20231006
